FAERS Safety Report 4488164-5 (Version None)
Quarter: 2004Q4

REPORT INFORMATION
  Report Type: 
  Country: None (occurrence: None)
  Receive Date: 20041028
  Receipt Date: 20041020
  Transmission Date: 20050328
  Serious: Yes (Death)
  Sender: FDA-Public Use
  Company Number: EMADSS2003003405

PATIENT
  Sex: Male

DRUGS (7)
  1. RISPERDAL [Suspect]
     Route: 049
  2. RISPERDAL [Suspect]
     Route: 049
  3. RISPERDAL [Suspect]
     Indication: ANXIETY
     Route: 049
  4. DOXYCYCLINUM [Interacting]
     Indication: DRUG USE FOR UNKNOWN INDICATION
     Route: 065
     Dates: start: 20020729
  5. SERESTA [Concomitant]
     Route: 065
     Dates: start: 20020708
  6. SERESTA [Concomitant]
     Route: 065
     Dates: start: 20020708
  7. SERESTA [Concomitant]
     Route: 065
     Dates: start: 20020708

REACTIONS (10)
  - ANXIETY [None]
  - DIFFICULTY IN WALKING [None]
  - DRUG INTERACTION [None]
  - ERYTHEMA [None]
  - FEELING ABNORMAL [None]
  - GENERAL PHYSICAL HEALTH DETERIORATION [None]
  - NEUROLEPTIC MALIGNANT SYNDROME [None]
  - PAIN IN EXTREMITY [None]
  - PROLONGED EXPIRATION [None]
  - STRIDOR [None]
